FAERS Safety Report 6228170-3 (Version None)
Quarter: 2009Q2

REPORT INFORMATION
  Report Type: 
  Country: None (occurrence: None)
  Receive Date: 20090612
  Receipt Date: 20090610
  Transmission Date: 20091009
  Serious: Yes (Hospitalization)
  Sender: FDA-Public Use
  Company Number: DE-BRISTOL-MYERS SQUIBB COMPANY-14658306

PATIENT
  Age: 45 Year
  Sex: Male
  Weight: 82 kg

DRUGS (11)
  1. CETUXIMAB [Suspect]
     Indication: NON-SMALL CELL LUNG CANCER STAGE IV
     Dosage: STARTED ON 04MAY09; ON DAY 1 OF CYCLE ONE ACTUAL DOSE(40ML)
     Route: 042
     Dates: start: 20090527, end: 20090527
  2. CISPLATIN [Suspect]
     Indication: NON-SMALL CELL LUNG CANCER STAGE IV
     Dosage: STARTED ON 04MAY09 ON DAY 1 EVERY 21 DAYS
     Route: 042
     Dates: start: 20090527, end: 20090527
  3. ALIMTA [Suspect]
     Indication: NON-SMALL CELL LUNG CANCER STAGE IV
     Dosage: STARTED ON 04MAY09;VIAL; ON DAY 1 EVERY 21 DAYS
     Route: 042
     Dates: start: 20090518, end: 20090518
  4. FOLIC ACID [Concomitant]
     Dates: start: 20090421
  5. VITAMIN B-12 [Concomitant]
     Dates: start: 20090421
  6. CORTICOSTEROID [Concomitant]
     Dates: start: 20090525, end: 20090528
  7. ANTIHISTAMINE NOS [Concomitant]
     Indication: PROPHYLAXIS
     Dates: start: 20090527, end: 20090527
  8. OXYGESIC [Concomitant]
     Indication: ANALGESIA
     Dates: start: 20090421
  9. IBUPROFEN [Concomitant]
     Indication: ANALGESIA
     Dates: start: 20090421
  10. NOVAMINSULFON [Concomitant]
     Indication: ANALGESIA
     Dates: start: 20090421
  11. PANTOZOL [Concomitant]
     Indication: GASTRITIS PROPHYLAXIS
     Dates: start: 20090420

REACTIONS (2)
  - OBSTRUCTION [None]
  - PAIN [None]
